FAERS Safety Report 8609639-0 (Version None)
Quarter: 2012Q3

REPORT INFORMATION
  Report Type: 
  Country: None (occurrence: None)
  Receive Date: 20120810
  Receipt Date: 20120810
  Transmission Date: 20120928
  Serious: Yes (Disabling)
  Sender: FDA-Public Use
  Company Number: None

PATIENT
  Sex: Male
  Weight: 77.1115 kg

DRUGS (1)
  1. LARIAM [Suspect]
     Indication: MALARIA PROPHYLAXIS
     Dates: start: 20021201

REACTIONS (4)
  - TOXICITY TO VARIOUS AGENTS [None]
  - READING DISORDER [None]
  - PHOTOPHOBIA [None]
  - BALANCE DISORDER [None]
